FAERS Safety Report 5217086-7 (Version None)
Quarter: 2007Q1

REPORT INFORMATION
  Report Type: 
  Country: None (occurrence: None)
  Receive Date: 20070118
  Receipt Date: 20070111
  Transmission Date: 20070707
  Serious: Yes (Hospitalization)
  Sender: FDA-Public Use
  Company Number: ESWYE903114JUL04

PATIENT
  Age: 73 Year
  Sex: Male

DRUGS (1)
  1. RAPAMUNE [Suspect]
     Indication: RENAL TRANSPLANT
     Dosage: 1 MG 1X PER 24 HR
     Route: 048
     Dates: start: 20040318, end: 20040601

REACTIONS (6)
  - KIDNEY TRANSPLANT REJECTION [None]
  - NEPHROSTOMY [None]
  - OBSTRUCTIVE UROPATHY [None]
  - POSTOPERATIVE WOUND INFECTION [None]
  - RENAL IMPAIRMENT [None]
  - URETERIC STENOSIS [None]
